FAERS Safety Report 23508900 (Version 2)
Quarter: 2024Q3

REPORT INFORMATION
  Report Type: Other
  Country: DE (occurrence: DE)
  Receive Date: 20240209
  Receipt Date: 20240717
  Transmission Date: 20241017
  Serious: Yes (Hospitalization, Other)
  Sender: VERITY PHARMACEUTICALS
  Company Number: DE-VER-202400001

PATIENT
  Age: 48 Year
  Sex: Male

DRUGS (6)
  1. TRIPTORELIN PAMOATE [Suspect]
     Active Substance: TRIPTORELIN PAMOATE
     Indication: Paraphilia
     Dosage: 11.25 MG, Q 3 MONTHS (11.25 MG,3 M)
     Route: 030
  2. CYPROTERONE ACETATE [Suspect]
     Active Substance: CYPROTERONE ACETATE
     Indication: Paraphilia
     Dosage: 300 MG, DEPOT EVERY 14 DAYS/300 MG, Q2WEEKS (300 MG,1 IN 14 D)
     Route: 065
     Dates: start: 2000, end: 2002
  3. TRENANTONE [Suspect]
     Active Substance: LEUPROLIDE ACETATE
     Indication: Paraphilia
     Dosage: 3 MONTHS DEPOT (3 M)
     Route: 065
     Dates: start: 2002, end: 2011
  4. CALCIUM [Suspect]
     Active Substance: CALCIUM
     Indication: Osteoporosis
     Route: 065
  5. CHOLECALCIFEROL [Suspect]
     Active Substance: CHOLECALCIFEROL
     Indication: Osteoporosis
     Route: 065
  6. DENOSUMAB [Suspect]
     Active Substance: DENOSUMAB
     Indication: Product used for unknown indication
     Route: 065

REACTIONS (7)
  - Hot flush [Unknown]
  - Hyperhidrosis [Unknown]
  - Nephrolithiasis [Unknown]
  - Osteoporosis [Unknown]
  - Osteopenia [Unknown]
  - Renal colic [Unknown]
  - Calculus urinary [Recovered/Resolved]

NARRATIVE: CASE EVENT DATE: 20140101
